FAERS Safety Report 5897219-X (Version None)
Quarter: 2008Q3

REPORT INFORMATION
  Report Type: 
  Country: None (occurrence: None)
  Receive Date: 20080923
  Receipt Date: 20080909
  Transmission Date: 20090109
  Serious: No
  Sender: FDA-Public Use
  Company Number: B0537699A

PATIENT
  Age: 38 Year
  Sex: Female

DRUGS (9)
  1. LAMIVUDINE [Suspect]
     Indication: HIV INFECTION
     Dates: start: 19970101
  2. ZIDOVUDINE [Suspect]
     Indication: HIV INFECTION
     Dates: start: 20020101
  3. STAVUDINE [Suspect]
     Indication: HIV INFECTION
     Dates: start: 19980101, end: 20020101
  4. DIDANOSINE [Suspect]
     Indication: HIV INFECTION
     Dates: start: 19980101, end: 20020101
  5. INDINIVIR SULFATE [Concomitant]
  6. NELFINAVIR MESYLATE [Concomitant]
  7. LOPINAVIR AND RITONAVIR [Concomitant]
  8. ATAZANAVIR SULFATE [Concomitant]
  9. RITONAVIR [Concomitant]

REACTIONS (13)
  - ASCITES [None]
  - BLEEDING VARICOSE VEIN [None]
  - HAEMANGIOMA [None]
  - HEPATIC FIBROSIS [None]
  - INTERNATIONAL NORMALISED RATIO INCREASED [None]
  - LIVER TRANSPLANT [None]
  - NODULAR REGENERATIVE HYPERPLASIA [None]
  - PORTAL HYPERTENSION [None]
  - PORTAL HYPERTENSIVE GASTROPATHY [None]
  - PORTAL VEIN THROMBOSIS [None]
  - PROTHROMBIN TIME PROLONGED [None]
  - SPLENOMEGALY [None]
  - VARICES OESOPHAGEAL [None]
